FAERS Safety Report 22039629 (Version 1)
Quarter: 2023Q1

REPORT INFORMATION
  Report Type: Spontaneous
  Country: IT (occurrence: IT)
  Receive Date: 20230227
  Receipt Date: 20230227
  Transmission Date: 20230418
  Serious: Yes (Hospitalization)
  Sender: FDA-Public Use
  Company Number: IT-MYLANLABS-2023M1020411

PATIENT
  Age: 35 Year
  Sex: Female

DRUGS (3)
  1. FUROSEMIDE [Suspect]
     Active Substance: FUROSEMIDE
     Indication: Pulmonary hypertension
     Dosage: UNK
     Route: 042
  2. HEPARIN [Suspect]
     Active Substance: HEPARIN SODIUM
     Indication: Cardiac ventricular thrombosis
     Dosage: UNK
     Route: 065
  3. HEPARIN [Suspect]
     Active Substance: HEPARIN SODIUM
     Indication: Deep vein thrombosis

REACTIONS (2)
  - Drug ineffective for unapproved indication [Unknown]
  - Off label use [Unknown]
